FAERS Safety Report 4942782-6 (Version None)
Quarter: 2006Q1

REPORT INFORMATION
  Report Type: 
  Country: None (occurrence: None)
  Receive Date: 20060314
  Receipt Date: 20060303
  Transmission Date: 20060701
  Serious: Yes (Life-Threatening, Hospitalization, Other)
  Sender: FDA-Public Use
  Company Number: NSADSS2002036153

PATIENT
  Sex: Female
  Weight: 88.45 kg

DRUGS (6)
  1. REMICADE [Suspect]
     Dosage: THE PATIENT RECEIVED A TOTAL OF 3 INFLIXIMAB INFUSIONS
     Route: 041
  2. REMICADE [Suspect]
     Indication: DERMATOMYOSITIS
     Route: 041
  3. REMICADE [Suspect]
     Indication: RHEUMATOID ARTHRITIS
     Route: 041
  4. IMURAN [Concomitant]
     Indication: DERMATOMYOSITIS
  5. PREDNISONE [Concomitant]
     Indication: DERMATOMYOSITIS
  6. FOSAMAX [Concomitant]
     Indication: OSTEOPOROSIS

REACTIONS (3)
  - HAEMOPTYSIS [None]
  - HYPOXIA [None]
  - TUBERCULOSIS [None]
